FAERS Safety Report 6912401-8 (Version None)
Quarter: 2010Q3

REPORT INFORMATION
  Report Type: 
  Country: None (occurrence: None)
  Receive Date: 20100806
  Receipt Date: 20080403
  Transmission Date: 20110219
  Serious: No
  Sender: FDA-Public Use
  Company Number: US-PFIZER INC-2008029885

PATIENT
  Sex: Male
  Weight: 114.54 kg

DRUGS (13)
  1. DETROL LA [Suspect]
     Indication: PROSTATOMEGALY
     Dates: start: 20060101
  2. FISH OIL [Concomitant]
  3. PROVIGIL [Concomitant]
  4. TRICOR [Concomitant]
  5. ALLOPURINOL [Concomitant]
  6. METFORMIN HCL [Concomitant]
  7. OMEPRAZOLE [Concomitant]
  8. AMLODIPINE [Concomitant]
     Dosage: 5/20MG
  9. ZETIA [Concomitant]
  10. ACETYLSALICYLIC ACID SRT [Concomitant]
  11. CITALOPRAM HYDROBROMIDE [Concomitant]
  12. MULTI-VITAMINS [Concomitant]
  13. COLESTID [Concomitant]

REACTIONS (1)
  - DRY MOUTH [None]
